FAERS Safety Report 7653290 (Version 92)
Quarter: 2017Q3

REPORT INFORMATION
  Report Type: Report from Study
  Country: CA (occurrence: CA)
  Receive Date: 20101102
  Receipt Date: 20170804
  Transmission Date: 20171128
  Serious: Yes (Hospitalization, Other)
  Sender: FDA-Public Use
  Company Number: PHHY2010CA51589

PATIENT
  Age: 42 Year
  Sex: Male

DRUGS (27)
  1. SANDOSTATIN LAR DEPOT [Suspect]
     Active Substance: OCTREOTIDE ACETATE
     Dosage: 20 MG QMO (ONCE A MONTH)
     Route: 030
     Dates: start: 20160927, end: 20170317
  2. RANITIDINE. [Concomitant]
     Active Substance: RANITIDINE
     Indication: PRODUCT USED FOR UNKNOWN INDICATION
     Dosage: 150 MG, BID
     Route: 065
  3. ONDANSETRON HYDROCHLORIDE. [Concomitant]
     Active Substance: ONDANSETRON HYDROCHLORIDE
     Indication: PRODUCT USED FOR UNKNOWN INDICATION
     Dosage: 1 DF, QD
     Route: 065
  4. SANDOSTATIN LAR DEPOT [Suspect]
     Active Substance: OCTREOTIDE ACETATE
     Dosage: 30 MG, EVERY 3 WEEKS
     Route: 030
  5. SANDOSTATIN LAR DEPOT [Suspect]
     Active Substance: OCTREOTIDE ACETATE
     Dosage: 10 MG, QMO  (EVERY 4 WEEKS)
     Route: 030
     Dates: start: 20151126
  6. SANDOSTATIN LAR DEPOT [Suspect]
     Active Substance: OCTREOTIDE ACETATE
     Dosage: UNK
     Route: 030
     Dates: start: 20170120
  7. HYDROMORPHONE [Concomitant]
     Active Substance: HYDROMORPHONE
     Indication: PRODUCT USED FOR UNKNOWN INDICATION
     Dosage: 04 MG, Q4H AS NEEDED
     Route: 065
  8. SANDOSTATIN [Suspect]
     Active Substance: OCTREOTIDE ACETATE
     Dosage: 50 ML, Q6H
     Route: 058
  9. SANDOSTATIN LAR DEPOT [Suspect]
     Active Substance: OCTREOTIDE ACETATE
     Dosage: 30 MG, QMO EVERY 4 WEEKS
     Route: 030
     Dates: start: 20170413, end: 20170512
  10. RASILEZ D [Concomitant]
     Active Substance: ALISKIREN\HYDROCHLOROTHIAZIDE
     Indication: PRODUCT USED FOR UNKNOWN INDICATION
     Dosage: 300 MG, QD
     Route: 065
  11. HYDROMORPH CONTIN [Concomitant]
     Active Substance: HYDROMORPHONE
     Indication: PRODUCT USED FOR UNKNOWN INDICATION
     Dosage: 12 MG, BID
     Route: 065
     Dates: start: 2016
  12. SANDOSTATIN [Suspect]
     Active Substance: OCTREOTIDE ACETATE
     Indication: CARCINOID TUMOUR OF THE SMALL BOWEL
     Dosage: 5 UG, TID
     Route: 058
     Dates: start: 20100422
  13. SANDOSTATIN [Suspect]
     Active Substance: OCTREOTIDE ACETATE
     Dosage: 5 UG, TID
     Route: 058
     Dates: end: 2010
  14. SANDOSTATIN LAR DEPOT [Suspect]
     Active Substance: OCTREOTIDE ACETATE
     Dosage: 20 MG, EVERY 2 WEEKS
     Route: 030
  15. SANDOSTATIN LAR DEPOT [Suspect]
     Active Substance: OCTREOTIDE ACETATE
     Dosage: 20 MG, EVERY 3 WEEKS
     Route: 030
  16. SANDOSTATIN LAR DEPOT [Suspect]
     Active Substance: OCTREOTIDE ACETATE
     Dosage: 30 MG, EVERY 3 WEEKS
     Route: 030
     Dates: start: 20170602
  17. PROPANOLOL [Concomitant]
     Active Substance: PROPRANOLOL HYDROCHLORIDE
     Indication: PRODUCT USED FOR UNKNOWN INDICATION
     Dosage: 20 MG, TID
     Route: 065
     Dates: start: 20101219
  18. SANDOSTATIN LAR DEPOT [Suspect]
     Active Substance: OCTREOTIDE ACETATE
     Indication: CARCINOID TUMOUR OF THE SMALL BOWEL
     Dosage: 30 MG, QMO (ONCE A MONTH)
     Route: 030
     Dates: start: 20100825
  19. SANDOSTATIN [Suspect]
     Active Substance: OCTREOTIDE ACETATE
     Dosage: 100 MG/ML, TID
     Route: 058
  20. SANDOSTATIN LAR DEPOT [Suspect]
     Active Substance: OCTREOTIDE ACETATE
     Dosage: 20 MG, QMO (EVERY 4 WEEKS)
     Route: 030
  21. LYRICA [Concomitant]
     Active Substance: PREGABALIN
     Indication: PRODUCT USED FOR UNKNOWN INDICATION
     Dosage: 50 MG, TID
     Route: 065
  22. CLONIDINE HYDROCHLORIDE. [Concomitant]
     Active Substance: CLONIDINE HYDROCHLORIDE
     Indication: PRODUCT USED FOR UNKNOWN INDICATION
     Dosage: 0.1 MG, QD
     Route: 065
  23. SANDOSTATIN [Suspect]
     Active Substance: OCTREOTIDE ACETATE
     Dosage: 100-200 UG
     Route: 058
  24. SANDOSTATIN LAR DEPOT [Suspect]
     Active Substance: OCTREOTIDE ACETATE
     Dosage: 30 MG, EVERY 2 WEEKS
     Route: 030
  25. SANDOSTATIN LAR DEPOT [Suspect]
     Active Substance: OCTREOTIDE ACETATE
     Dosage: 40 MG, QMO
     Route: 030
     Dates: start: 20170630
  26. NAPROXEN. [Concomitant]
     Active Substance: NAPROXEN
     Indication: PRODUCT USED FOR UNKNOWN INDICATION
     Dosage: 500 MG, QD
     Route: 065
  27. HYDROMORPHONE [Concomitant]
     Active Substance: HYDROMORPHONE
     Dosage: 9 MG, BID
     Route: 065
     Dates: start: 2016

REACTIONS (60)
  - Erythema [Unknown]
  - Asthenia [Unknown]
  - Intestinal obstruction [Unknown]
  - Vomiting [Unknown]
  - Flank pain [Unknown]
  - Retching [Unknown]
  - Poor quality sleep [Unknown]
  - Chest pain [Recovered/Resolved]
  - Heart rate increased [Unknown]
  - Blood urine present [Unknown]
  - Flushing [Unknown]
  - Cardiac murmur [Recovering/Resolving]
  - Oedema [Recovering/Resolving]
  - Discomfort [Unknown]
  - Decreased appetite [Unknown]
  - Rash [Unknown]
  - Needle issue [Unknown]
  - Hepatomegaly [Unknown]
  - Incisional hernia [Unknown]
  - Peripheral swelling [Unknown]
  - Abdominal discomfort [Unknown]
  - Influenza [Recovering/Resolving]
  - Nausea [Not Recovered/Not Resolved]
  - Haemoptysis [Unknown]
  - Pneumonia [Unknown]
  - Abdominal pain [Unknown]
  - Cardiac disorder [Unknown]
  - Vision blurred [Unknown]
  - Cough [Unknown]
  - Gastrooesophageal reflux disease [Unknown]
  - Pain [Unknown]
  - Body temperature decreased [Unknown]
  - Dizziness [Unknown]
  - Dyspnoea [Unknown]
  - Serum serotonin increased [Unknown]
  - Fall [Unknown]
  - Scar [Unknown]
  - Hypoaesthesia [Recovering/Resolving]
  - Weight decreased [Unknown]
  - Blood pressure diastolic increased [Unknown]
  - Blood pressure systolic increased [Unknown]
  - Fatigue [Unknown]
  - Blood pressure increased [Unknown]
  - Heart rate decreased [Unknown]
  - Cholelithiasis [Unknown]
  - Visual impairment [Unknown]
  - Oedema peripheral [Unknown]
  - White blood cell count increased [Unknown]
  - Abdominal pain upper [Recovering/Resolving]
  - Blood pressure fluctuation [Unknown]
  - Nervousness [Unknown]
  - Pain in extremity [Unknown]
  - Malaise [Unknown]
  - Burning sensation [Unknown]
  - Chest discomfort [Unknown]
  - Diarrhoea [Recovering/Resolving]
  - Headache [Unknown]
  - Heart rate irregular [Unknown]
  - Blood glucose increased [Unknown]
  - Inappropriate schedule of drug administration [Unknown]

NARRATIVE: CASE EVENT DATE: 20100825
